FAERS Safety Report 7475393-1 (Version None)
Quarter: 2011Q2

REPORT INFORMATION
  Report Type: 
  Country: None (occurrence: None)
  Receive Date: 20110510
  Receipt Date: 20110510
  Transmission Date: 20111010
  Serious: Yes (Death, Life-Threatening, Hospitalization, Disabling, Other)
  Sender: FDA-Public Use
  Company Number: None

PATIENT
  Age: 87 Year
  Sex: Female
  Weight: 58.0604 kg

DRUGS (1)
  1. INTRON A [Suspect]
     Indication: RENAL CELL CARCINOMA
     Dates: start: 20031229

REACTIONS (1)
  - FALL [None]
